FAERS Safety Report 21697881 (Version 1)
Quarter: 2022Q4

REPORT INFORMATION
  Report Type: Spontaneous
  Country: JP (occurrence: JP)
  Receive Date: 20221208
  Receipt Date: 20221208
  Transmission Date: 20230112
  Serious: No
  Sender: FDA-Public Use
  Company Number: JP-ALKEM LABORATORIES LIMITED-JP-ALKEM-2022-11246

PATIENT
  Age: 39 Week
  Sex: Male

DRUGS (7)
  1. TOLVAPTAN [Suspect]
     Active Substance: TOLVAPTAN
     Indication: Cardiac failure congestive
     Dosage: 0.05 MG/KG/DAY
     Route: 048
  2. TOLVAPTAN [Suspect]
     Active Substance: TOLVAPTAN
     Indication: Chylothorax
     Dosage: UPTIRATED TO 0.1 MG/KG/DAY
     Route: 048
  3. Dopamine/Dobutamine [Concomitant]
     Indication: Chylothorax
     Dosage: UNK
     Route: 065
  4. EPINEPHRINE [Concomitant]
     Active Substance: EPINEPHRINE
     Indication: Chylothorax
     Dosage: UNK
     Route: 065
  5. FUROSEMIDE [Concomitant]
     Active Substance: FUROSEMIDE
     Indication: Chylothorax
     Dosage: I.V. INFUSION (UP TO 5 MG/KG/DAY)
     Route: 042
  6. OCTREOTIDE [Concomitant]
     Active Substance: OCTREOTIDE
     Indication: Chylothorax
     Dosage: UNK
     Route: 065
  7. PREDNISONE [Concomitant]
     Active Substance: PREDNISONE
     Indication: Chylothorax
     Dosage: UNK
     Route: 065

REACTIONS (2)
  - Urine output increased [Unknown]
  - Weight decreased [Unknown]
